FAERS Safety Report 21865580 (Version 3)
Quarter: 2023Q4

REPORT INFORMATION
  Report Type: Spontaneous
  Country: US (occurrence: US)
  Receive Date: 20230116
  Receipt Date: 20231017
  Transmission Date: 20240110
  Serious: Yes (Other)
  Sender: FDA-Public Use
  Company Number: US-AUROBINDO-AUR-APL-2023-002028

PATIENT
  Age: 40 Year
  Sex: Male

DRUGS (3)
  1. TRANEXAMIC ACID [Suspect]
     Active Substance: TRANEXAMIC ACID
     Indication: Haemorrhage
     Dosage: 1 GRAM
     Route: 065
  2. DESMOPRESSIN [Suspect]
     Active Substance: DESMOPRESSIN
     Indication: Haemorrhage
     Dosage: 0.3 MICROGRAM/KILOGRAM
     Route: 065
  3. ASPIRIN [Concomitant]
     Active Substance: ASPIRIN
     Indication: Antiplatelet therapy
     Dosage: UNK
     Route: 065

REACTIONS (3)
  - Acute myocardial infarction [Recovered/Resolved]
  - Vascular stent thrombosis [Unknown]
  - Chest pain [Recovered/Resolved]
